FAERS Safety Report 8480002-9 (Version None)
Quarter: 2012Q2

REPORT INFORMATION
  Report Type: 
  Country: None (occurrence: None)
  Receive Date: 20120629
  Receipt Date: 20120620
  Transmission Date: 20120825
  Serious: Yes (Death, Other)
  Sender: FDA-Public Use
  Company Number: JP-CELGENEUS-087-50794-11121263

PATIENT
  Sex: Male
  Weight: 48 kg

DRUGS (16)
  1. ITRACONAZOLE [Concomitant]
     Route: 065
     Dates: start: 20110405, end: 20110408
  2. ISONIAZID [Concomitant]
     Route: 065
  3. KENALOG [Concomitant]
     Route: 065
     Dates: start: 20110405
  4. MEDICON [Concomitant]
     Route: 065
  5. MEROPENEM [Concomitant]
     Route: 065
     Dates: end: 20110404
  6. ZOSYN [Concomitant]
     Route: 065
     Dates: start: 20110405
  7. DIFLUCAN [Concomitant]
     Route: 065
     Dates: start: 20110409
  8. KYTRIL [Concomitant]
     Route: 065
     Dates: start: 20110404, end: 20110410
  9. POLARAMINE [Concomitant]
     Route: 065
     Dates: start: 20110406, end: 20110406
  10. VIDAZA [Suspect]
     Indication: MYELODYSPLASTIC SYNDROME
     Dosage: 75 MILLIGRAM/SQ. METER
     Route: 065
     Dates: start: 20110404, end: 20110410
  11. GLAKAY [Concomitant]
     Route: 065
  12. CEFAZOLIN SODIUM [Concomitant]
     Route: 065
  13. CLARITHROMYCIN [Concomitant]
     Route: 065
  14. FUNGUARD [Concomitant]
     Route: 065
  15. ONEALFA [Concomitant]
     Route: 065
  16. SOLU-CORTEF [Concomitant]
     Route: 065
     Dates: start: 20110406, end: 20110406

REACTIONS (6)
  - PYREXIA [None]
  - NAUSEA [None]
  - MYELODYSPLASTIC SYNDROME [None]
  - STOMATITIS [None]
  - PNEUMONIA [None]
  - DIARRHOEA [None]
